FAERS Safety Report 4586766-9 (Version None)
Quarter: 2005Q1

REPORT INFORMATION
  Report Type: 
  Country: None (occurrence: None)
  Receive Date: 20050218
  Receipt Date: 20050207
  Transmission Date: 20050727
  Serious: Yes (Other)
  Sender: FDA-Public Use
  Company Number: US-BRISTOL-MYERS SQUIBB COMPANY-12852208

PATIENT
  Age: 88 Year
  Sex: Female
  Weight: 63 kg

DRUGS (3)
  1. KENALOG-40 [Suspect]
     Indication: CHOROIDAL NEOVASCULARISATION
     Route: 031
     Dates: start: 20050201, end: 20050201
  2. ALTACE [Concomitant]
  3. TOPROL-XL [Concomitant]

REACTIONS (1)
  - ENDOPHTHALMITIS [None]
